FAERS Safety Report 20050270 (Version 1)
Quarter: 2021Q4

REPORT INFORMATION
  Report Type: Spontaneous
  Country: IN (occurrence: IN)
  Receive Date: 20211109
  Receipt Date: 20211109
  Transmission Date: 20220303
  Serious: Yes (Death, Other)
  Sender: FDA-Public Use
  Company Number: IN-PFIZER INC-2021259836

PATIENT
  Age: 58 Year
  Sex: Female
  Weight: 58 kg

DRUGS (10)
  1. PALBOCICLIB [Suspect]
     Active Substance: PALBOCICLIB
     Indication: Breast cancer metastatic
     Dosage: 125 MG
     Route: 048
     Dates: start: 20200113
  2. PALBOCICLIB [Suspect]
     Active Substance: PALBOCICLIB
     Dosage: 125 MG, CYCLIC (0-1-0 FOR 21 DAYS)
     Route: 048
     Dates: start: 20210113
  3. PALBOCICLIB [Suspect]
     Active Substance: PALBOCICLIB
     Dosage: 75 MG, CYCLIC (0-1-0 FOR 21 DAYS)
     Route: 048
     Dates: start: 20210220, end: 20210312
  4. LETROZOLE [Concomitant]
     Active Substance: LETROZOLE
     Dosage: 2.5 MG, CYCLIC (0-1-0 FOR 28 DAYS)
     Route: 048
     Dates: start: 202101
  5. LETROZOLE [Concomitant]
     Active Substance: LETROZOLE
     Dosage: 2.5 MG, CYCLIC (0-1-0 FOR 28 DAYS)
     Route: 048
  6. ZOLEDRONIC ACID [Concomitant]
     Active Substance: ZOLEDRONIC ACID
     Dosage: 4 MG IN 100ML NS IV OVER 30 MINUTES
     Route: 042
     Dates: start: 202101
  7. SHELCAL [CALCIUM CARBONATE;COLECALCIFEROL] [Concomitant]
     Dosage: 500 MG, CYCLIC (-0-1 FOR 28 DAYS)
     Route: 048
  8. SHELCAL [CALCIUM CARBONATE;COLECALCIFEROL] [Concomitant]
     Dosage: 500 MG, CYCLIC (1-0-1 FOR 28 DAYS)
     Route: 048
  9. FAMOTIDINE [Concomitant]
     Active Substance: FAMOTIDINE
     Dosage: 20 MG, CYCLIC (1-0-1 FOR 28 DAYS)
     Route: 048
  10. BEPLEX FORTE [ASCORBIC ACID;BIOTIN;CALCIUM PANTOTHENATE;FOLIC ACID;NIC [Concomitant]
     Dosage: 0-1-0 FOR 28 DAYS

REACTIONS (2)
  - White blood cell count decreased [Unknown]
  - Death [Fatal]

NARRATIVE: CASE EVENT DATE: 20210901
